FAERS Safety Report 12768326 (Version 1)
Quarter: 2016Q3

REPORT INFORMATION
  Report Type: Spontaneous
  Country: US (occurrence: US)
  Receive Date: 20160921
  Receipt Date: 20160921
  Transmission Date: 20161109
  Serious: No
  Sender: FDA-Public Use
  Company Number: US-BRAINTREE LABORATORIES-160226

PATIENT
  Age: 78 Year
  Sex: Female
  Weight: 82.55 kg

DRUGS (1)
  1. SUPREP BOWEL PREP [Suspect]
     Active Substance: MAGNESIUM SULFATE\POTASSIUM SULFATE\SODIUM SULFATE
     Indication: COLONOSCOPY
     Dosage: 1 X 6 OZ. BOTTLE
     Route: 048
     Dates: start: 20160323, end: 20160323

REACTIONS (4)
  - Dizziness [None]
  - Abdominal pain [None]
  - Vision blurred [None]
  - Chest pain [None]

NARRATIVE: CASE EVENT DATE: 20160323
